FAERS Safety Report 13568500 (Version 2)
Quarter: 2017Q2

REPORT INFORMATION
  Report Type: Spontaneous
  Country: FR (occurrence: FR)
  Receive Date: 20170522
  Receipt Date: 20170522
  Transmission Date: 20170830
  Serious: Yes (Other)
  Sender: FDA-Public Use
  Company Number: FR-FRESENIUS KABI-FK201704219

PATIENT
  Age: 62 Year
  Sex: Male

DRUGS (4)
  1. CYTARABINE INJECTION [Suspect]
     Active Substance: CYTARABINE
     Indication: ANGIOIMMUNOBLASTIC T-CELL LYMPHOMA STAGE IV
     Route: 042
     Dates: start: 20160110, end: 20160113
  2. ETOPOPHOS [Suspect]
     Active Substance: ETOPOSIDE PHOSPHATE
     Indication: ANGIOIMMUNOBLASTIC T-CELL LYMPHOMA STAGE IV
     Route: 042
     Dates: start: 20160110, end: 20160113
  3. ALKERAN [Suspect]
     Active Substance: MELPHALAN
     Indication: ANGIOIMMUNOBLASTIC T-CELL LYMPHOMA STAGE IV
     Route: 042
     Dates: start: 20160114, end: 20160114
  4. BICNU [Suspect]
     Active Substance: CARMUSTINE
     Indication: ANGIOIMMUNOBLASTIC T-CELL LYMPHOMA STAGE IV
     Route: 042
     Dates: start: 20160109, end: 20160109

REACTIONS (2)
  - Agranulocytosis [Recovered/Resolved]
  - Capnocytophaga infection [Recovered/Resolved]

NARRATIVE: CASE EVENT DATE: 20160120
